FAERS Safety Report 7141004-8 (Version None)
Quarter: 2010Q4

REPORT INFORMATION
  Report Type: 
  Country: None (occurrence: None)
  Receive Date: 20101122
  Receipt Date: 20101015
  Transmission Date: 20110411
  Serious: Yes (Hospitalization)
  Sender: FDA-Public Use
  Company Number: FR-2010-1336

PATIENT
  Age: 44 Year
  Sex: Female
  Weight: 102 kg

DRUGS (4)
  1. VINORELBINE [Suspect]
     Indication: BREAST CANCER METASTATIC
     Dosage: 40 MG IV
     Route: 042
     Dates: start: 20100318, end: 20100602
  2. LAPATINIB [Suspect]
     Indication: BREAST CANCER METASTATIC
     Dosage: 1000 MG PO
     Route: 048
     Dates: start: 20100311, end: 20100606
  3. PARACETAMOL [Concomitant]
  4. INNOHEP. MFR: NOT SPECIFIED [Concomitant]

REACTIONS (4)
  - BILIARY COLIC [None]
  - CELL DEATH [None]
  - CHOLELITHIASIS [None]
  - GAMMA-GLUTAMYLTRANSFERASE INCREASED [None]
